FAERS Safety Report 5837605-7 (Version None)
Quarter: 2008Q3

REPORT INFORMATION
  Report Type: 
  Country: None (occurrence: None)
  Receive Date: 20080807
  Receipt Date: 20080730
  Transmission Date: 20090109
  Serious: Yes (Other)
  Sender: FDA-Public Use
  Company Number: PHHY2008JP10596

PATIENT

DRUGS (1)
  1. FEMARA [Suspect]
     Route: 048

REACTIONS (1)
  - RETINAL ARTERY EMBOLISM [None]
